FAERS Safety Report 14474025 (Version 3)
Quarter: 2018Q1

REPORT INFORMATION
  Report Type: Spontaneous
  Country: IL (occurrence: IL)
  Receive Date: 20180201
  Receipt Date: 20180329
  Transmission Date: 20180509
  Serious: Yes (Hospitalization, Disabling)
  Sender: FDA-Public Use
  Company Number: IL-ROCHE-2063912

PATIENT
  Age: 80 Year
  Sex: Male

DRUGS (1)
  1. TECENTRIQ [Suspect]
     Active Substance: ATEZOLIZUMAB
     Indication: NON-SMALL CELL LUNG CANCER
     Route: 065
     Dates: start: 20171127

REACTIONS (5)
  - Asthenia [Unknown]
  - Dizziness [Unknown]
  - Syncope [Recovered/Resolved]
  - Fall [Unknown]
  - Incontinence [Unknown]

NARRATIVE: CASE EVENT DATE: 20171129
